FAERS Safety Report 8287073-3 (Version None)
Quarter: 2012Q2

REPORT INFORMATION
  Report Type: 
  Country: None (occurrence: None)
  Receive Date: 20120416
  Receipt Date: 20110516
  Transmission Date: 20120825
  Serious: No
  Sender: FDA-Public Use
  Company Number: US-ALLERGAN-1106684US

PATIENT
  Age: 82 Year
  Sex: Female

DRUGS (2)
  1. REFRESH PLUS [Concomitant]
     Indication: DRY EYE
     Route: 047
  2. ZYMAXID [Suspect]
     Indication: AGE-RELATED MACULAR DEGENERATION
     Dosage: UNK
     Dates: start: 20110512

REACTIONS (2)
  - DYSPNOEA [None]
  - MUSCULOSKELETAL PAIN [None]
